FAERS Safety Report 13767547 (Version 1)
Quarter: 2017Q3

REPORT INFORMATION
  Report Type: Spontaneous
  Country: US (occurrence: US)
  Receive Date: 20170719
  Receipt Date: 20170719
  Transmission Date: 20171127
  Serious: Yes (Life-Threatening, Hospitalization, Disabling, Congenital Anomaly)
  Sender: FDA-Public Use
  Company Number: None

PATIENT
  Age: 49 Year
  Sex: Male
  Weight: 73.09 kg

DRUGS (6)
  1. ZOLOFT [Suspect]
     Active Substance: SERTRALINE HYDROCHLORIDE
  2. LISAPO [Concomitant]
  3. ABILIFY [Suspect]
     Active Substance: ARIPIPRAZOLE
     Indication: BIPOLAR DISORDER
     Dosage: 350MG 200ML PILLS TWICE DALIY MOUTH OR INJECTION?
     Route: 048
     Dates: start: 20080619, end: 20111022
  4. PREVACID [Suspect]
     Active Substance: LANSOPRAZOLE
  5. DEPAKOTE [Suspect]
     Active Substance: DIVALPROEX SODIUM
  6. ABILIFY [Suspect]
     Active Substance: ARIPIPRAZOLE
     Indication: DEPRESSION
     Dosage: 350MG 200ML PILLS TWICE DALIY MOUTH OR INJECTION?
     Route: 048
     Dates: start: 20080619, end: 20111022

REACTIONS (9)
  - Swelling face [None]
  - Libido increased [None]
  - Bipolar disorder [None]
  - Gambling [None]
  - Suicidal ideation [None]
  - Swollen tongue [None]
  - Depression [None]
  - Abdominal pain upper [None]
  - Headache [None]

NARRATIVE: CASE EVENT DATE: 20080619
